FAERS Safety Report 10565332 (Version 1)
Quarter: 2014Q4

REPORT INFORMATION
  Report Type: Spontaneous
  Country: None (occurrence: None)
  Receive Date: 20141104
  Receipt Date: 20141104
  Transmission Date: 20150529
  Serious: No
  Sender: FDA-Public Use
  Company Number: None

PATIENT
  Age: 34 Year
  Sex: Male

DRUGS (1)
  1. COLGATE PERIOGARD [Suspect]
     Active Substance: CHLORHEXIDINE
     Indication: PHARYNGEAL INFLAMMATION
     Route: 048

REACTIONS (3)
  - Pharyngeal inflammation [None]
  - Salivary gland disorder [None]
  - Odynophagia [None]

NARRATIVE: CASE EVENT DATE: 20141031
